FAERS Safety Report 9797888 (Version 2)
Quarter: 2014Q1

REPORT INFORMATION
  Report Type: Spontaneous
  Country: US (occurrence: US)
  Receive Date: 20140106
  Receipt Date: 20140106
  Transmission Date: 20141002
  Serious: Yes (Disabling)
  Sender: FDA-Public Use
  Company Number: US-GE HEALTHCARE MEDICAL DIAGNOSTICS-OSCN-PR-0911S-0511

PATIENT
  Age: 57 Year
  Sex: Male

DRUGS (3)
  1. OMNISCAN [Suspect]
     Indication: RENAL ARTERY STENOSIS
     Route: 042
     Dates: start: 20040708, end: 20040708
  2. OMNISCAN [Suspect]
     Indication: HYPERTENSION
     Route: 042
     Dates: start: 20040712, end: 20040712
  3. OMNISCAN [Suspect]
     Indication: INFECTION
     Route: 042
     Dates: start: 20040722, end: 20040722

REACTIONS (1)
  - Nephrogenic systemic fibrosis [Not Recovered/Not Resolved]
